FAERS Safety Report 6439034-4 (Version None)
Quarter: 2009Q4

REPORT INFORMATION
  Report Type: 
  Country: None (occurrence: None)
  Receive Date: 20091113
  Receipt Date: 20091109
  Transmission Date: 20100525
  Serious: Yes (Other)
  Sender: FDA-Public Use
  Company Number: US-ALEXION-A200900942

PATIENT
  Sex: Female

DRUGS (3)
  1. SOLIRIS [Suspect]
     Indication: PAROXYSMAL NOCTURNAL HAEMOGLOBINURIA
     Dosage: 600 MG
     Route: 042
  2. SOLIRIS [Suspect]
     Dosage: 600 MG WEEKLY FOR 4 WEEKS
     Route: 042
     Dates: start: 20081015, end: 20081101
  3. SOLIRIS [Suspect]
     Dosage: 900 MG Q2W

REACTIONS (1)
  - BONE MARROW TRANSPLANT [None]
